FAERS Safety Report 21104614 (Version 3)
Quarter: 2022Q3

REPORT INFORMATION
  Report Type: Other
  Country: JP (occurrence: JP)
  Receive Date: 20220720
  Receipt Date: 20220912
  Transmission Date: 20221026
  Serious: Yes (Other)
  Sender: FDA-Public Use
  Company Number: JP-CHUGAI-2022026531

PATIENT
  Age: 76 Year
  Sex: Female
  Weight: 47.6 kg

DRUGS (14)
  1. POLATUZUMAB VEDOTIN [Suspect]
     Active Substance: POLATUZUMAB VEDOTIN
     Indication: Diffuse large B-cell lymphoma refractory
     Dosage: 1.8 MILLIGRAM/KILOGRAM, ONCE/3WEEKS
     Route: 041
     Dates: start: 20210706, end: 20211019
  2. POLATUZUMAB VEDOTIN [Suspect]
     Active Substance: POLATUZUMAB VEDOTIN
     Indication: Diffuse large B-cell lymphoma
     Route: 042
     Dates: start: 20210706, end: 20210706
  3. POLATUZUMAB VEDOTIN [Suspect]
     Active Substance: POLATUZUMAB VEDOTIN
     Route: 042
     Dates: start: 20210727, end: 20210727
  4. POLATUZUMAB VEDOTIN [Suspect]
     Active Substance: POLATUZUMAB VEDOTIN
     Route: 042
     Dates: start: 20210817, end: 20210817
  5. POLATUZUMAB VEDOTIN [Suspect]
     Active Substance: POLATUZUMAB VEDOTIN
     Route: 042
     Dates: start: 20210907, end: 20210907
  6. POLATUZUMAB VEDOTIN [Suspect]
     Active Substance: POLATUZUMAB VEDOTIN
     Route: 042
     Dates: start: 20210928, end: 20210928
  7. POLATUZUMAB VEDOTIN [Suspect]
     Active Substance: POLATUZUMAB VEDOTIN
     Route: 042
     Dates: start: 20211019, end: 20211019
  8. POLATUZUMAB VEDOTIN [Suspect]
     Active Substance: POLATUZUMAB VEDOTIN
     Route: 042
     Dates: start: 20210706, end: 20211020
  9. BENDAMUSTINE HYDROCHLORIDE [Suspect]
     Active Substance: BENDAMUSTINE HYDROCHLORIDE
     Indication: Diffuse large B-cell lymphoma
     Dosage: UNK
     Route: 041
     Dates: start: 20210706, end: 20211020
  10. RITUXIMAB [Suspect]
     Active Substance: RITUXIMAB
     Indication: Diffuse large B-cell lymphoma refractory
     Route: 041
     Dates: start: 20210705, end: 20211019
  11. RITUXIMAB [Concomitant]
     Active Substance: RITUXIMAB
     Indication: Diffuse large B-cell lymphoma
     Dosage: UNK
     Route: 041
     Dates: start: 20210705, end: 20211019
  12. SULFAMETHOXAZOLE\TRIMETHOPRIM [Concomitant]
     Active Substance: SULFAMETHOXAZOLE\TRIMETHOPRIM
     Indication: Infection prophylaxis
     Dosage: UNK
     Route: 048
     Dates: start: 20210702
  13. ACYCLOVIR [Concomitant]
     Active Substance: ACYCLOVIR
     Indication: Infection prophylaxis
     Dosage: UNK
     Route: 048
     Dates: start: 20210713
  14. FUNGIZONE [Concomitant]
     Active Substance: AMPHOTERICIN B
     Indication: Infection prophylaxis
     Dosage: UNK
     Route: 048
     Dates: start: 20210708, end: 20220218

REACTIONS (3)
  - Platelet count decreased [Recovered/Resolved]
  - Pyrexia [Recovered/Resolved]
  - Vomiting [Recovered/Resolved]

NARRATIVE: CASE EVENT DATE: 20210730
